FAERS Safety Report 5908408-X (Version None)
Quarter: 2008Q4

REPORT INFORMATION
  Report Type: 
  Country: None (occurrence: None)
  Receive Date: 20081006
  Receipt Date: 20080929
  Transmission Date: 20090506
  Serious: Yes (Hospitalization)
  Sender: FDA-Public Use
  Company Number: US-JNJFOC-20081000081

PATIENT
  Sex: Female
  Weight: 99.79 kg

DRUGS (1)
  1. FENTANYL TRANSDERMAL SYSTEM [Suspect]
     Indication: BACK PAIN
     Route: 062

REACTIONS (5)
  - BACK DISORDER [None]
  - BACK PAIN [None]
  - DEEP VEIN THROMBOSIS [None]
  - POSTOPERATIVE WOUND INFECTION [None]
  - WRONG TECHNIQUE IN DRUG USAGE PROCESS [None]
